FAERS Safety Report 17712437 (Version 3)
Quarter: 2020Q2

REPORT INFORMATION
  Report Type: Spontaneous
  Country: US (occurrence: US)
  Receive Date: 20200427
  Receipt Date: 20200518
  Transmission Date: 20200714
  Serious: No
  Sender: FDA-Public Use
  Company Number: US-PFIZER INC-2020166583

PATIENT
  Age: 58 Year
  Sex: Female
  Weight: 81.65 kg

DRUGS (1)
  1. DEMEROL [Suspect]
     Active Substance: MEPERIDINE HYDROCHLORIDE
     Indication: BREAKTHROUGH PAIN
     Dosage: 150 MG, AS NEEDED
     Dates: start: 20200413

REACTIONS (1)
  - Drug ineffective [Unknown]
